FAERS Safety Report 25221762 (Version 1)
Quarter: 2025Q2

REPORT INFORMATION
  Report Type: Spontaneous
  Country: US (occurrence: None)
  Receive Date: 20250421
  Receipt Date: 20250421
  Transmission Date: 20250717
  Serious: Yes (Hospitalization)
  Sender: FDA-CTU
  Company Number: None

PATIENT
  Age: 60 Year
  Sex: Female
  Weight: 116.6 kg

DRUGS (1)
  1. ENFORTUMAB VEDOTIN [Suspect]
     Active Substance: ENFORTUMAB VEDOTIN
     Indication: Rectal adenocarcinoma
     Dates: start: 20250404, end: 20250411

REACTIONS (4)
  - Stevens-Johnson syndrome [None]
  - Tachycardia [None]
  - Constipation [None]
  - Blood lactic acid increased [None]

NARRATIVE: CASE EVENT DATE: 20250419
